FAERS Safety Report 5129884-9 (Version None)
Quarter: 2006Q4

REPORT INFORMATION
  Report Type: 
  Country: None (occurrence: None)
  Receive Date: 20061012
  Receipt Date: 20061003
  Transmission Date: 20070319
  Serious: Yes (Hospitalization)
  Sender: FDA-Public Use
  Company Number: 310012K06FRA

PATIENT
  Age: 30 Year
  Sex: Female

DRUGS (2)
  1. GONAL-F [Suspect]
     Indication: OVULATION INDUCTION
     Dosage: SEE IMAGE
     Dates: start: 20060112
  2. GONAL-F [Suspect]
     Indication: OVULATION INDUCTION
     Dosage: SEE IMAGE
     Dates: start: 20060901

REACTIONS (7)
  - ABORTION SPONTANEOUS [None]
  - ANGIONEUROTIC OEDEMA [None]
  - DRUG EXPOSURE BEFORE PREGNANCY [None]
  - DYSPNOEA [None]
  - FACE OEDEMA [None]
  - PREGNANCY [None]
  - THERAPY NON-RESPONDER [None]
